FAERS Safety Report 9000171 (Version 1)
Quarter: 2013Q1

REPORT INFORMATION
  Report Type: Spontaneous
  Country: FR (occurrence: FR)
  Receive Date: 20130102
  Receipt Date: 20130102
  Transmission Date: 20140127
  Serious: Yes (Hospitalization, Other)
  Sender: FDA-Public Use
  Company Number: FR-JNJFOC-20121212531

PATIENT
  Age: 35 Year
  Sex: Female

DRUGS (5)
  1. REMICADE [Suspect]
     Indication: CROHN^S DISEASE
     Route: 042
     Dates: start: 20120403
  2. REMICADE [Suspect]
     Indication: CROHN^S DISEASE
     Route: 042
     Dates: start: 20121004, end: 20121004
  3. PREDNISOLONE [Concomitant]
     Dosage: DISEASE-MODIFYING DRUG
     Route: 065
  4. HYDROCORTISONE [Concomitant]
     Indication: PREMEDICATION
     Route: 065
  5. DEXCHLORPHENIRAMINE [Concomitant]
     Indication: PREMEDICATION
     Route: 065

REACTIONS (10)
  - Pyramidal tract syndrome [Unknown]
  - Paraesthesia [Recovering/Resolving]
  - Bronchospasm [Recovered/Resolved]
  - Bacterial pyelonephritis [Unknown]
  - Infusion related reaction [Recovered/Resolved]
  - Arthralgia [Unknown]
  - Rash [Recovered/Resolved]
  - Hypoaesthesia [Unknown]
  - Abdominal pain [Unknown]
  - Headache [Unknown]
